FAERS Safety Report 21924008 (Version 1)
Quarter: 2023Q1

REPORT INFORMATION
  Report Type: Spontaneous
  Country: UG (occurrence: UG)
  Receive Date: 20230130
  Receipt Date: 20230130
  Transmission Date: 20230417
  Serious: Yes (Disabling)
  Sender: FDA-Public Use
  Company Number: UG-CIPLA (EU) LIMITED-2022UG07549

PATIENT
  Age: 45 Year
  Sex: Male

DRUGS (8)
  1. LAMIVUDINE\TENOFOVIR [Suspect]
     Active Substance: LAMIVUDINE\TENOFOVIR
     Indication: Antiretroviral therapy
     Dosage: UNK
     Route: 065
     Dates: start: 2005
  2. LAMIVUDINE\TENOFOVIR [Suspect]
     Active Substance: LAMIVUDINE\TENOFOVIR
     Dosage: UNK
     Route: 065
     Dates: start: 2021
  3. ATAZANAVIR SULFATE\RITONAVIR [Suspect]
     Active Substance: ATAZANAVIR SULFATE\RITONAVIR
     Indication: Antiretroviral therapy
     Dosage: UNK
     Route: 065
     Dates: start: 2005
  4. ATAZANAVIR SULFATE\RITONAVIR [Suspect]
     Active Substance: ATAZANAVIR SULFATE\RITONAVIR
     Dosage: UNK
     Route: 065
     Dates: start: 2021
  5. OMEFLEX [Concomitant]
     Indication: Product used for unknown indication
     Dosage: UNK
     Route: 065
  6. NEUROTON [CYANOCOBALAMIN;FOLIC ACID;PYRIDOXINE HYDROCHLORIDE;RIBOFLAVI [Concomitant]
     Indication: Product used for unknown indication
     Dosage: UNK
     Route: 065
  7. LIGABA [Concomitant]
     Indication: Product used for unknown indication
     Dosage: UNK
     Route: 065
  8. ACEPAR MR [Concomitant]
     Indication: Product used for unknown indication
     Dosage: UNK
     Route: 065

REACTIONS (4)
  - Bedridden [Unknown]
  - Hypokinesia [Unknown]
  - Adverse event [Unknown]
  - Treatment noncompliance [Unknown]

NARRATIVE: CASE EVENT DATE: 20210101
